FAERS Safety Report 4937134-9 (Version None)
Quarter: 2006Q1

REPORT INFORMATION
  Report Type: 
  Country: None (occurrence: None)
  Receive Date: 20060307
  Receipt Date: 20060307
  Transmission Date: 20060701
  Serious: Yes (Other)
  Sender: FDA-Public Use
  Company Number: None

PATIENT
  Sex: Male
  Weight: 108.8633 kg

DRUGS (4)
  1. OXYCONTIN [Suspect]
     Indication: BACK PAIN
     Dosage: 80 MG FOUR TID
     Dates: start: 20060221, end: 20060302
  2. OXYCONTIN [Suspect]
     Indication: PAIN
     Dosage: 80 MG FOUR TID
     Dates: start: 20060221, end: 20060302
  3. GABITRIL [Concomitant]
  4. OXYFAST [Concomitant]

REACTIONS (3)
  - SCAR [None]
  - SKIN HAEMORRHAGE [None]
  - URTICARIA GENERALISED [None]
